FAERS Safety Report 19878658 (Version 3)
Quarter: 2021Q4

REPORT INFORMATION
  Report Type: Spontaneous
  Country: US (occurrence: None)
  Receive Date: 20210923
  Receipt Date: 20211213
  Transmission Date: 20220304
  Serious: No
  Sender: FDA-Public Use
  Company Number: 2021A703914

PATIENT
  Age: 23947 Day
  Sex: Female
  Weight: 72.6 kg

DRUGS (6)
  1. SYMLIN [Suspect]
     Active Substance: PRAMLINTIDE ACETATE
     Indication: Blood glucose increased
     Route: 058
     Dates: start: 20210715
  2. SYMLIN [Suspect]
     Active Substance: PRAMLINTIDE ACETATE
     Indication: Weight control
     Route: 058
     Dates: start: 20210715
  3. SYMLIN [Suspect]
     Active Substance: PRAMLINTIDE ACETATE
     Indication: Decreased activity
     Route: 058
     Dates: start: 20210715
  4. SYMLIN [Suspect]
     Active Substance: PRAMLINTIDE ACETATE
     Indication: Blood glucose increased
     Dosage: SOMETIMES TAKES SYMLIN ONLY TWICE EACH DAY
     Route: 058
  5. SYMLIN [Suspect]
     Active Substance: PRAMLINTIDE ACETATE
     Indication: Weight control
     Dosage: SOMETIMES TAKES SYMLIN ONLY TWICE EACH DAY
     Route: 058
  6. SYMLIN [Suspect]
     Active Substance: PRAMLINTIDE ACETATE
     Indication: Decreased activity
     Dosage: SOMETIMES TAKES SYMLIN ONLY TWICE EACH DAY
     Route: 058

REACTIONS (9)
  - Abdominal discomfort [Recovered/Resolved]
  - Hypophagia [Recovered/Resolved]
  - Headache [Recovered/Resolved]
  - Decreased appetite [Recovered/Resolved]
  - Nausea [Recovered/Resolved]
  - Off label use [Unknown]
  - Wrong technique in device usage process [Unknown]
  - Intentional product misuse [Unknown]
  - Device issue [Unknown]

NARRATIVE: CASE EVENT DATE: 20210715
